FAERS Safety Report 15590427 (Version 1)
Quarter: 2018Q4

REPORT INFORMATION
  Report Type: Spontaneous
  Country: ZA (occurrence: ZA)
  Receive Date: 20181106
  Receipt Date: 20181106
  Transmission Date: 20190205
  Serious: Yes (Hospitalization, Other)
  Sender: FDA-Public Use
  Company Number: IND-ZA-009507513-1811ZAF001079

PATIENT
  Age: 63 Year
  Sex: Male

DRUGS (6)
  1. ZARTAN (LOSARTAN POTASSIUM) [Suspect]
     Active Substance: LOSARTAN POTASSIUM
     Dosage: UNK
  2. AMLOC (AMLODIPINE BESYLATE) [Suspect]
     Active Substance: AMLODIPINE BESYLATE
     Dosage: UNK
  3. AMILORETIC [Suspect]
     Active Substance: AMILORIDE HYDROCHLORIDE\HYDROCHLOROTHIAZIDE
     Dosage: UNK
  4. LYRICA [Suspect]
     Active Substance: PREGABALIN
     Dosage: UNK
  5. BILOCOR [Suspect]
     Active Substance: BISOPROLOL FUMARATE
     Dosage: UNK
  6. ARCOXIA [Suspect]
     Active Substance: ETORICOXIB
     Dosage: UNK

REACTIONS (2)
  - Intervertebral disc degeneration [Unknown]
  - Wound infection [Not Recovered/Not Resolved]

NARRATIVE: CASE EVENT DATE: 20181015
